FAERS Safety Report 5564786-5 (Version None)
Quarter: 2007Q4

REPORT INFORMATION
  Report Type: 
  Country: None (occurrence: None)
  Receive Date: 20071218
  Receipt Date: 20071206
  Transmission Date: 20080405
  Serious: Yes (Hospitalization, Other)
  Sender: FDA-Public Use
  Company Number: DE-GENENTECH-232444

PATIENT
  Sex: Male

DRUGS (3)
  1. XOLAIR [Suspect]
     Indication: ASTHMA
     Dosage: 300 MG, 1/MONTH
     Route: 058
     Dates: start: 20060501, end: 20060701
  2. DECORTIN [Concomitant]
     Indication: DRUG USE FOR UNKNOWN INDICATION
  3. MEDICATION (UNK INGREDIENT) [Concomitant]
     Indication: DRUG USE FOR UNKNOWN INDICATION
     Dosage: UNK, 3/WEEK

REACTIONS (3)
  - CONVULSION [None]
  - HYPERTHERMIA MALIGNANT [None]
  - RHABDOMYOLYSIS [None]
